FAERS Safety Report 14983333 (Version 1)
Quarter: 2018Q2

REPORT INFORMATION
  Report Type: Spontaneous
  Country: US (occurrence: US)
  Receive Date: 20180607
  Receipt Date: 20180607
  Transmission Date: 20180711
  Serious: Yes (Life-Threatening, Hospitalization, Other)
  Sender: FDA-Public Use
  Company Number: US-TORRENT-00006217

PATIENT
  Age: 4 Decade
  Sex: Female

DRUGS (5)
  1. QUETIAPINE. [Suspect]
     Active Substance: QUETIAPINE
     Indication: PRODUCT USED FOR UNKNOWN INDICATION
     Dosage: TITRATING THE DOSE FOR THE PAST 2 MONTHS
  2. VENLAFAXINE [Interacting]
     Active Substance: VENLAFAXINE HYDROCHLORIDE
     Indication: PRODUCT USED FOR UNKNOWN INDICATION
  3. LEVOTHYROXINE. [Concomitant]
     Active Substance: LEVOTHYROXINE
     Indication: PRODUCT USED FOR UNKNOWN INDICATION
  4. CLONAZEPAM. [Concomitant]
     Active Substance: CLONAZEPAM
     Indication: PRODUCT USED FOR UNKNOWN INDICATION
     Dosage: UNK
  5. LAMOTRIGINE. [Concomitant]
     Active Substance: LAMOTRIGINE
     Indication: PRODUCT USED FOR UNKNOWN INDICATION

REACTIONS (8)
  - Left ventricular dysfunction [Recovering/Resolving]
  - Unresponsive to stimuli [Recovering/Resolving]
  - Ventricular fibrillation [Recovering/Resolving]
  - Coma [Recovering/Resolving]
  - Torsade de pointes [Recovering/Resolving]
  - Electrocardiogram QT prolonged [Recovering/Resolving]
  - Cardiac arrest [Recovering/Resolving]
  - Drug interaction [Recovering/Resolving]
